FAERS Safety Report 4654920-3 (Version None)
Quarter: 2005Q2

REPORT INFORMATION
  Report Type: 
  Country: None (occurrence: None)
  Receive Date: 20050506
  Receipt Date: 20040920
  Transmission Date: 20051028
  Serious: No
  Sender: FDA-Public Use
  Company Number: US-GLAXOSMITHKLINE-A0526431A

PATIENT
  Age: 50 Year
  Sex: Male

DRUGS (1)
  1. AMOXIL [Suspect]
     Indication: ILL-DEFINED DISORDER

REACTIONS (1)
  - DRUG SCREEN POSITIVE [None]
